FAERS Safety Report 9285759 (Version 2)
Quarter: 2013Q2

REPORT INFORMATION
  Report Type: Spontaneous
  Country: DE (occurrence: DE)
  Receive Date: 20130513
  Receipt Date: 20130522
  Transmission Date: 20140414
  Serious: Yes (Hospitalization, Disabling)
  Sender: FDA-Public Use
  Company Number: DE-PFIZER INC-2013145649

PATIENT
  Age: 58 Year
  Sex: Female

DRUGS (6)
  1. CORDAREX [Suspect]
     Indication: ATRIAL FIBRILLATION
     Dosage: 400 MG, 3X/DAY
     Route: 048
     Dates: start: 20130227, end: 201303
  2. CORDAREX [Suspect]
     Dosage: 200 MG, DAILY
     Route: 048
     Dates: start: 201303, end: 20130505
  3. MARCUMAR [Concomitant]
     Dosage: UNK
  4. GLUCOPHAGE [Concomitant]
     Dosage: UNK
  5. BISOPROLOL [Concomitant]
     Dosage: UNK
  6. L-THYROXIN [Concomitant]
     Dosage: UNK

REACTIONS (2)
  - Paraparesis [Not Recovered/Not Resolved]
  - Paraesthesia [Not Recovered/Not Resolved]
